FAERS Safety Report 4847964-X (Version None)
Quarter: 2005Q4

REPORT INFORMATION
  Report Type: 
  Country: None (occurrence: None)
  Receive Date: 20051206
  Receipt Date: 20051116
  Transmission Date: 20060501
  Serious: Yes (Hospitalization, Other)
  Sender: FDA-Public Use
  Company Number: US200511001350

PATIENT
  Age: 50 Year
  Sex: Male

DRUGS (3)
  1. FORTEO [Suspect]
     Indication: SPINAL OSTEOARTHRITIS
     Dates: start: 20050901, end: 20051108
  2. FORTEO [Concomitant]
  3. BENTYL [Concomitant]

REACTIONS (3)
  - GASTRIC ULCER [None]
  - HAEMATOCHEZIA [None]
  - PHARMACEUTICAL PRODUCT COMPLAINT [None]
